FAERS Safety Report 7729848-2 (Version None)
Quarter: 2011Q3

REPORT INFORMATION
  Report Type: 
  Country: None (occurrence: None)
  Receive Date: 20110906
  Receipt Date: 20110830
  Transmission Date: 20111222
  Serious: Yes (Other)
  Sender: FDA-Public Use
  Company Number: US-BRACCO-003619

PATIENT
  Sex: Female
  Weight: 78 kg

DRUGS (47)
  1. DIGOXIN [Concomitant]
  2. FERROUS SULFATE TAB [Concomitant]
  3. CONTRAST MEDIA [Suspect]
     Indication: VENOGRAM
     Route: 065
     Dates: start: 20050915, end: 20050915
  4. CONTRAST MEDIA [Suspect]
     Dates: start: 20030819, end: 20030819
  5. CARDIZEM CD [Concomitant]
  6. NORVASC [Concomitant]
  7. COUMADIN [Concomitant]
  8. OMNISCAN [Suspect]
     Indication: DIAGNOSTIC PROCEDURE
     Route: 065
     Dates: start: 20050915, end: 20050915
  9. CONTRAST MEDIA [Suspect]
     Indication: NUCLEAR MAGNETIC RESONANCE IMAGING ABDOMINAL
     Route: 065
     Dates: start: 20070517, end: 20070517
  10. CONTRAST MEDIA [Suspect]
  11. COZAAR [Concomitant]
  12. NEPHROVITE [Concomitant]
  13. DECADRON [Concomitant]
  14. METOPROLOL SUCCINATE [Concomitant]
  15. CONTRAST MEDIA [Suspect]
     Indication: ANGIOGRAM
     Route: 065
     Dates: start: 20070920, end: 20070920
  16. PHOSLO [Concomitant]
  17. CATAPRES-TTS-1 [Concomitant]
  18. PREDNISONE [Concomitant]
  19. MULTIHANCE [Suspect]
     Route: 065
     Dates: start: 20070920, end: 20070920
  20. MAGNEVIST [Suspect]
     Indication: DIAGNOSTIC PROCEDURE
     Route: 065
  21. OPTIMARK [Suspect]
     Indication: DIAGNOSTIC PROCEDURE
     Route: 065
  22. ADVAIR DISKUS 100/50 [Concomitant]
  23. CONTRAST MEDIA [Suspect]
     Dates: start: 20050222, end: 20050222
  24. CONTRAST MEDIA [Suspect]
     Dates: start: 20030207, end: 20030207
  25. CONTRAST MEDIA [Suspect]
     Dates: start: 20030520, end: 20030520
  26. CONTRAST MEDIA [Suspect]
  27. VENOFER [Concomitant]
  28. EPOGEN [Concomitant]
  29. CONTRAST MEDIA [Suspect]
     Route: 065
     Dates: start: 20000919, end: 20000919
  30. CONTRAST MEDIA [Suspect]
     Dates: start: 20011109, end: 20011109
  31. ASPIRIN [Concomitant]
  32. CONTRAST MEDIA [Suspect]
     Indication: FISTULOGRAM
     Route: 065
     Dates: start: 20070208, end: 20070208
  33. CONTRAST MEDIA [Suspect]
     Dates: start: 20050602, end: 20050602
  34. CONTRAST MEDIA [Suspect]
     Dates: start: 20060705, end: 20060705
  35. CARDURA [Concomitant]
  36. NITROGLYCERIN [Concomitant]
  37. CONTRAST MEDIA [Suspect]
     Dates: start: 20040810, end: 20040810
  38. CONTRAST MEDIA [Suspect]
     Dates: start: 20050915, end: 20050915
  39. CONTRAST MEDIA [Suspect]
     Dates: start: 20040506, end: 20040506
  40. CONTRAST MEDIA [Suspect]
     Dates: start: 20000920, end: 20000920
  41. ZOCOR [Concomitant]
  42. LASIX [Concomitant]
  43. MULTIHANCE [Suspect]
     Indication: DIAGNOSTIC PROCEDURE
     Route: 065
     Dates: start: 20070517, end: 20070517
  44. PROHANCE [Suspect]
     Indication: DIAGNOSTIC PROCEDURE
     Route: 065
  45. METOPROLOL [Concomitant]
  46. CONTRAST MEDIA [Suspect]
     Dates: start: 20020801, end: 20020801
  47. SIMVASTATIN [Concomitant]

REACTIONS (1)
  - NEPHROGENIC SYSTEMIC FIBROSIS [None]
